FAERS Safety Report 11603447 (Version 1)
Quarter: 2015Q4

REPORT INFORMATION
  Report Type: Spontaneous
  Country: US (occurrence: US)
  Receive Date: 20151007
  Receipt Date: 20151007
  Transmission Date: 20160304
  Serious: No
  Sender: FDA-Public Use
  Company Number: US-GLENMARK PHARMACEUTICALS INC, USA.-2015GMK014489

PATIENT

DRUGS (1)
  1. TROSPIUM CHLORIDE TABLETS [Suspect]
     Active Substance: TROSPIUM CHLORIDE
     Indication: NOCTURIA
     Dosage: 1 DF, EVERY OTHER DAY
     Route: 048
     Dates: start: 20150224, end: 20150301

REACTIONS (6)
  - Drug prescribing error [Unknown]
  - Documented hypersensitivity to administered product [None]
  - Pruritus [Not Recovered/Not Resolved]
  - Rash [Not Recovered/Not Resolved]
  - Pain in jaw [Not Recovered/Not Resolved]
  - Rash [None]

NARRATIVE: CASE EVENT DATE: 20150227
